FAERS Safety Report 20784213 (Version 2)
Quarter: 2022Q2

REPORT INFORMATION
  Report Type: Spontaneous
  Country: US (occurrence: US)
  Receive Date: 20220504
  Receipt Date: 20220602
  Transmission Date: 20220720
  Serious: No
  Sender: FDA-Public Use
  Company Number: US-PFIZER INC-202200643625

PATIENT
  Age: 59 Year
  Sex: Male
  Weight: 83.91 kg

DRUGS (2)
  1. PAXLOVID [Suspect]
     Active Substance: NIRMATRELVIR\RITONAVIR
     Indication: COVID-19 treatment
     Dosage: UNK
     Dates: start: 20220422, end: 20220426
  2. SIMVASTATIN [Suspect]
     Active Substance: SIMVASTATIN
     Indication: Blood cholesterol increased
     Dosage: 40 MG
     Route: 048
     Dates: end: 20220422

REACTIONS (1)
  - Contraindicated product prescribed [Unknown]

NARRATIVE: CASE EVENT DATE: 20220422
